FAERS Safety Report 23689835 (Version 2)
Quarter: 2025Q3

REPORT INFORMATION
  Report Type: Report from Study
  Country: US (occurrence: US)
  Receive Date: 20240331
  Receipt Date: 20250813
  Transmission Date: 20251021
  Serious: Yes (Hospitalization)
  Sender: NOVARTIS
  Company Number: US-002147023-NVSC2024US065914

PATIENT
  Age: 33 Year
  Sex: Male

DRUGS (1)
  1. KESIMPTA [Suspect]
     Active Substance: OFATUMUMAB
     Indication: Product used for unknown indication
     Route: 065

REACTIONS (3)
  - Multiple sclerosis relapse [Unknown]
  - Paraesthesia [Unknown]
  - Pain [Unknown]

NARRATIVE: CASE EVENT DATE: 20250811
